FAERS Safety Report 23172524 (Version 2)
Quarter: 2024Q2

REPORT INFORMATION
  Report Type: Report from Study
  Country: JP (occurrence: JP)
  Receive Date: 20231110
  Receipt Date: 20240626
  Transmission Date: 20240715
  Serious: Yes (Other)
  Sender: FDA-Public Use
  Company Number: JP-ALXN-A202106382AA

PATIENT
  Age: 8 Year
  Sex: Female
  Weight: 19.5 kg

DRUGS (11)
  1. STRENSIQ [Suspect]
     Active Substance: ASFOTASE ALFA
     Indication: Hypophosphatasia
     Dosage: 2 MILLIGRAM/KILOGRAM, TIW
     Route: 058
     Dates: start: 20150926, end: 20210626
  2. STRENSIQ [Suspect]
     Active Substance: ASFOTASE ALFA
     Dosage: 3 MILLIGRAM/KILOGRAM, TIW
     Route: 058
     Dates: start: 20210628, end: 20220517
  3. STRENSIQ [Suspect]
     Active Substance: ASFOTASE ALFA
     Dosage: 2.71 MILLIGRAM/KILOGRAM, TIW
     Route: 058
     Dates: start: 20220518
  4. VITAMIN B6 [Concomitant]
     Active Substance: PYRIDOXINE HYDROCHLORIDE
     Indication: Hypophosphatasia
     Dosage: 75 MILLIGRAM, BID
     Route: 048
     Dates: start: 20190111
  5. TRANILAST [Concomitant]
     Active Substance: TRANILAST
     Indication: Hypophosphatasia
     Dosage: 25 MILLIGRAM, BID
     Route: 048
     Dates: end: 20210713
  6. TRANILAST [Concomitant]
     Active Substance: TRANILAST
     Dosage: 25 MILLIGRAM, QD
     Route: 048
     Dates: start: 20210714
  7. ERYTHROCIN [Concomitant]
     Active Substance: ERYTHROMYCIN LACTOBIONATE
     Indication: Hypophosphatasia
     Dosage: 100 MILLIGRAM, QD
     Route: 048
  8. Mucosal [Concomitant]
     Indication: Hypophosphatasia
     Dosage: 4.5 MILLIGRAM, BID
     Route: 048
  9. LEVETIRACETAM [Concomitant]
     Active Substance: LEVETIRACETAM
     Indication: Epilepsy
     Dosage: 120 MILLIGRAM, BID
     Route: 048
     Dates: end: 20210520
  10. LEVETIRACETAM [Concomitant]
     Active Substance: LEVETIRACETAM
     Indication: Hypophosphatasia
     Dosage: 190 MILLIGRAM, BID
     Route: 048
     Dates: start: 20210521, end: 20210617
  11. LEVETIRACETAM [Concomitant]
     Active Substance: LEVETIRACETAM
     Dosage: 295 MILLIGRAM, BID
     Route: 048
     Dates: start: 20210618

REACTIONS (7)
  - Nephrocalcinosis [Recovered/Resolved]
  - Condition aggravated [Recovered/Resolved]
  - Eczema [Recovered/Resolved]
  - Loose tooth [Recovered/Resolved]
  - Tooth development disorder [Recovered/Resolved]
  - Drug ineffective [Unknown]
  - Injection site induration [Recovering/Resolving]

NARRATIVE: CASE EVENT DATE: 20201217
